FAERS Safety Report 8420408-7 (Version None)
Quarter: 2012Q2

REPORT INFORMATION
  Report Type: 
  Country: None (occurrence: None)
  Receive Date: 20120607
  Receipt Date: 20120530
  Transmission Date: 20120825
  Serious: Yes (Life-Threatening, Hospitalization, Disabling, Other)
  Sender: FDA-Public Use
  Company Number: US-MERCK-1205USA02854

PATIENT
  Age: 68 Year
  Sex: Female
  Weight: 124 kg

DRUGS (1)
  1. VYTORIN [Suspect]
     Indication: BLOOD CHOLESTEROL INCREASED
     Route: 048
     Dates: start: 20050101, end: 20110222

REACTIONS (3)
  - MUSCLE ATROPHY [None]
  - BLOOD CREATINE PHOSPHOKINASE INCREASED [None]
  - ARTHROPATHY [None]
